FAERS Safety Report 4708547-5 (Version None)
Quarter: 2005Q3

REPORT INFORMATION
  Report Type: 
  Country: None (occurrence: None)
  Receive Date: 20050707
  Receipt Date: 20050705
  Transmission Date: 20060218
  Serious: Yes (Hospitalization)
  Sender: FDA-Public Use
  Company Number: S200500262

PATIENT
  Age: 61 Year
  Sex: Male

DRUGS (3)
  1. AMOXICILLIN [Suspect]
     Dosage: 1500MG PER DAY
     Route: 048
     Dates: start: 20041102
  2. LANSOPRAZOLE [Suspect]
     Route: 048
     Dates: start: 20041102
  3. CLARITHROMYCIN [Suspect]
     Dosage: 400MG PER DAY
     Route: 048
     Dates: start: 20041102

REACTIONS (3)
  - ABDOMINAL PAIN [None]
  - ENTEROCOLITIS HAEMORRHAGIC [None]
  - MELAENA [None]
